FAERS Safety Report 9696056 (Version 1)
Quarter: 2013Q4

REPORT INFORMATION
  Report Type: Spontaneous
  Country: CN (occurrence: None)
  Receive Date: 20131115
  Receipt Date: 20131115
  Transmission Date: 20140711
  Serious: Yes (Hospitalization, Other)
  Sender: FDA-Public Use
  Company Number: IMP_06871_2013

PATIENT
  Age: 20 Year
  Sex: Male

DRUGS (2)
  1. CHLOROQUINE [Suspect]
     Indication: MALARIA
  2. PRIMAQUINE [Suspect]
     Indication: MALARIA

REACTIONS (18)
  - Malaria [None]
  - Vomiting [None]
  - Pyrexia [None]
  - Chills [None]
  - Dizziness [None]
  - Cough [None]
  - Nausea [None]
  - Aphagia [None]
  - Insomnia [None]
  - Mental status changes [None]
  - Headache [None]
  - Ocular icterus [None]
  - Yellow skin [None]
  - Respiratory rate increased [None]
  - Haemoglobin decreased [None]
  - Haemolysis [None]
  - Pallor [None]
  - Hepatosplenomegaly [None]
